FAERS Safety Report 7313969-2 (Version None)
Quarter: 2011Q1

REPORT INFORMATION
  Report Type: 
  Country: None (occurrence: None)
  Receive Date: 20110225
  Receipt Date: 20110215
  Transmission Date: 20110831
  Serious: Yes (Other)
  Sender: FDA-Public Use
  Company Number: CA-JNJFOC-20110205055

PATIENT
  Sex: Female
  Weight: 59.1 kg

DRUGS (2)
  1. REMICADE [Suspect]
     Indication: PRODUCT USED FOR UNKNOWN INDICATION
     Route: 042
  2. BENADRYL [Concomitant]
     Indication: PREMEDICATION

REACTIONS (8)
  - TACHYPNOEA [None]
  - INFUSION RELATED REACTION [None]
  - PAIN IN EXTREMITY [None]
  - OXYGEN SATURATION DECREASED [None]
  - NAUSEA [None]
  - BLOOD PRESSURE INCREASED [None]
  - TACHYCARDIA [None]
  - PARAESTHESIA [None]
